FAERS Safety Report 5577491-6 (Version None)
Quarter: 2007Q4

REPORT INFORMATION
  Report Type: 
  Country: None (occurrence: None)
  Receive Date: 20071228
  Receipt Date: 20071218
  Transmission Date: 20080405
  Serious: Yes (Other)
  Sender: FDA-Public Use
  Company Number: US-PFIZER INC-2007106446

PATIENT
  Age: 43 Year
  Sex: Female

DRUGS (1)
  1. SOLU-MEDROL [Suspect]

REACTIONS (3)
  - DYSPNOEA [None]
  - ERYTHEMA [None]
  - HYPERSENSITIVITY [None]
